FAERS Safety Report 8261279-1 (Version None)
Quarter: 2012Q2

REPORT INFORMATION
  Report Type: 
  Country: None (occurrence: None)
  Receive Date: 20120405
  Receipt Date: 20120330
  Transmission Date: 20120825
  Serious: Yes (Other)
  Sender: FDA-Public Use
  Company Number: US-JNJFOC-20120400358

PATIENT
  Age: 20 Year
  Sex: Female

DRUGS (1)
  1. NUCYNTA ER [Suspect]
     Indication: PAIN
     Route: 065

REACTIONS (3)
  - MOOD SWINGS [None]
  - BLOOD PRESSURE INCREASED [None]
  - AGITATION [None]
